FAERS Safety Report 19006025 (Version 1)
Quarter: 2021Q1

REPORT INFORMATION
  Report Type: Report from Study
  Country: GB (occurrence: GB)
  Receive Date: 20210314
  Receipt Date: 20210314
  Transmission Date: 20210420
  Serious: Yes (Other)
  Sender: FDA-Public Use
  Company Number: GB-JNJFOC-20210320553

PATIENT
  Age: 75 Year
  Sex: Male

DRUGS (2)
  1. ZYTIGA [Suspect]
     Active Substance: ABIRATERONE ACETATE
     Indication: PROSTATE CANCER
     Route: 048
     Dates: start: 20200128
  2. PREDNISOLONE. [Concomitant]
     Active Substance: PREDNISOLONE
     Indication: PROSTATE CANCER
     Dosage: FREQUENCY: 2 DAYS
     Route: 048
     Dates: start: 20200128

REACTIONS (3)
  - Haemoglobin decreased [Unknown]
  - Renal impairment [Unknown]
  - Prostatic specific antigen increased [Unknown]

NARRATIVE: CASE EVENT DATE: 20210303
